FAERS Safety Report 8066839-9 (Version None)
Quarter: 2012Q1

REPORT INFORMATION
  Report Type: 
  Country: None (occurrence: None)
  Receive Date: 20120124
  Receipt Date: 20120119
  Transmission Date: 20120608
  Serious: Yes (Hospitalization)
  Sender: FDA-Public Use
  Company Number: PHHO2011BE018478

PATIENT
  Sex: Female
  Weight: 86 kg

DRUGS (8)
  1. COMPARATOR TRASTUZUMAB [Suspect]
     Indication: BREAST CANCER METASTATIC
     Dosage: 170 MG,WEEKLY
     Route: 042
     Dates: start: 20111021, end: 20111103
  2. PACLITAXEL [Suspect]
     Indication: BREAST CANCER METASTATIC
     Dosage: 120 MG,WEEKLY
     Route: 042
     Dates: start: 20111021, end: 20111103
  3. BLINDED PLACEBO [Suspect]
     Indication: BREAST CANCER METASTATIC
     Dosage: DOUBLE BLINDED
     Route: 048
     Dates: start: 20111021, end: 20111102
  4. OMEPRAZOLE [Concomitant]
     Indication: OESOPHAGITIS
     Dosage: 20 MG, QD
     Route: 048
     Dates: start: 20111004
  5. AMLODIPINE BESYLATE [Concomitant]
     Indication: HYPERTENSION
     Dosage: 5 MG, QD
     Route: 048
     Dates: start: 20110615
  6. AFINITOR [Suspect]
     Indication: BREAST CANCER METASTATIC
     Dosage: DOUBLE BLINDED
     Route: 048
     Dates: start: 20111021, end: 20111102
  7. BLINDED NO TREATMENT RECEIVED [Suspect]
     Indication: BREAST CANCER METASTATIC
     Dosage: DOUBLE BLINDED
     Route: 048
     Dates: start: 20111021, end: 20111102
  8. ELTHYRONE [Concomitant]
     Indication: HYPOTHYROIDISM
     Dosage: 100 MG, QD
     Route: 048
     Dates: start: 20110615

REACTIONS (2)
  - PNEUMONIA SALMONELLA [None]
  - PNEUMONIA KLEBSIELLA [None]
